FAERS Safety Report 11874179 (Version 3)
Quarter: 2016Q1

REPORT INFORMATION
  Report Type: Spontaneous
  Country: US (occurrence: US)
  Receive Date: 20151229
  Receipt Date: 20160211
  Transmission Date: 20160526
  Serious: Yes (Death, Hospitalization, Other)
  Sender: FDA-Public Use
  Company Number: US-AMGEN-USASP2015138222

PATIENT
  Age: 82 Year
  Sex: Male
  Weight: 87.75 kg

DRUGS (16)
  1. LEVETIRACETAM. [Concomitant]
     Active Substance: LEVETIRACETAM
     Dosage: 500 MG, BID
     Route: 048
  2. METRONIDAZOLE. [Concomitant]
     Active Substance: METRONIDAZOLE
     Dosage: 500 MG, Q8H
     Route: 048
  3. ZYTIGA [Concomitant]
     Active Substance: ABIRATERONE ACETATE
  4. LIPITOR [Concomitant]
     Active Substance: ATORVASTATIN CALCIUM
     Dosage: 10 MG, QD
  5. ATORVASTATIN [Concomitant]
     Active Substance: ATORVASTATIN
     Dosage: 20 MG, QD
     Route: 048
  6. OMNIPAQUE [Concomitant]
     Active Substance: IOHEXOL
  7. VITAMIN D3 [Concomitant]
     Active Substance: CHOLECALCIFEROL
     Dosage: 2000 IU, QD
     Route: 048
  8. GLUCOPHAGE [Concomitant]
     Active Substance: METFORMIN HYDROCHLORIDE
     Dosage: 500 MG, BID
     Route: 048
  9. XTANDI [Concomitant]
     Active Substance: ENZALUTAMIDE
  10. PROVENGE [Concomitant]
     Active Substance: SIPULEUCEL-T
  11. LUPRON [Concomitant]
     Active Substance: LEUPROLIDE ACETATE
     Dosage: 22.5 MG, Q3WK
  12. CEFTRIAXONE. [Concomitant]
     Active Substance: CEFTRIAXONE
     Dosage: 2 G/50 ML, QD
     Route: 042
  13. XGEVA [Suspect]
     Active Substance: DENOSUMAB
     Indication: PROSTATE CANCER METASTATIC
     Dosage: 120 MG/ 1.7 ML, Q4WK
     Route: 058
     Dates: start: 20110329, end: 20151103
  14. CASODEX [Concomitant]
     Active Substance: BICALUTAMIDE
  15. ASPIRIN                            /00002701/ [Concomitant]
     Active Substance: ASPIRIN
     Dosage: 81 MG, QD
     Route: 048
  16. LABETALOL [Concomitant]
     Active Substance: LABETALOL\LABETALOL HYDROCHLORIDE
     Dosage: 100 MG, BID
     Route: 048

REACTIONS (36)
  - Dysphagia [Unknown]
  - Blood sodium abnormal [Unknown]
  - Blood phosphorus abnormal [Unknown]
  - Red blood cell count abnormal [Unknown]
  - Malaise [Unknown]
  - Dental caries [Unknown]
  - Constipation [Unknown]
  - Brain abscess [Unknown]
  - Hypoxia [Unknown]
  - Hot flush [Recovering/Resolving]
  - Urinary tract disorder [Unknown]
  - Periodontal disease [Unknown]
  - Haemoglobin abnormal [Unknown]
  - Fatigue [Unknown]
  - Blood urea abnormal [Unknown]
  - Blood calcium abnormal [Unknown]
  - Asthenia [Unknown]
  - Death [Fatal]
  - Prostatomegaly [Unknown]
  - Blood alkaline phosphatase abnormal [Unknown]
  - Seizure [Unknown]
  - Troponin increased [Unknown]
  - Prostate cancer metastatic [Unknown]
  - Atrial fibrillation [Unknown]
  - Nocturia [Unknown]
  - Ischaemia [Unknown]
  - Hyponatraemia [Unknown]
  - Hyperlipidaemia [Unknown]
  - Vitamin D deficiency [Unknown]
  - Haematocrit abnormal [Unknown]
  - Lymphocyte count [Unknown]
  - Sinusitis [Unknown]
  - Acute respiratory failure [Unknown]
  - Osteonecrosis of jaw [Unknown]
  - Hyperglycaemia [Unknown]
  - Hypokalaemia [Unknown]
